FAERS Safety Report 9421778 (Version 1)
Quarter: 2013Q3

REPORT INFORMATION
  Report Type: Spontaneous
  Country: IN (occurrence: IN)
  Receive Date: 20130726
  Receipt Date: 20130726
  Transmission Date: 20140515
  Serious: Yes (Death)
  Sender: FDA-Public Use
  Company Number: IN-009507513-1307IND013897

PATIENT
  Age: 70 Year
  Sex: 0

DRUGS (2)
  1. JANUVIA [Suspect]
     Dosage: 1 DF, QD, STRENGTH: 100 (UNITS UNKNOWN)
     Route: 048
  2. VOGLIBOSE [Concomitant]

REACTIONS (3)
  - Death [Fatal]
  - Cataract [Unknown]
  - Atrioventricular block [Unknown]
